FAERS Safety Report 5220743-X (Version None)
Quarter: 2007Q1

REPORT INFORMATION
  Report Type: 
  Country: None (occurrence: None)
  Receive Date: 20070125
  Receipt Date: 20070125
  Transmission Date: 20070707
  Serious: Yes (Life-Threatening, Hospitalization)
  Sender: FDA-Public Use
  Company Number: None

PATIENT
  Age: 65 Year
  Sex: Male

DRUGS (2)
  1. GEMCITABINE [Suspect]
     Indication: NON-SMALL CELL LUNG CANCER
     Dosage: 1900 MG IV
     Route: 042
  2. CISPLATIN [Suspect]
     Indication: NON-SMALL CELL LUNG CANCER
     Dosage: 143 MG IV
     Route: 042

REACTIONS (6)
  - BODY TEMPERATURE INCREASED [None]
  - DECREASED APPETITE [None]
  - DYSPNOEA [None]
  - FEBRILE NEUTROPENIA [None]
  - LABORATORY TEST ABNORMAL [None]
  - PRODUCTIVE COUGH [None]
